FAERS Safety Report 10645706 (Version 1)
Quarter: 2014Q4

REPORT INFORMATION
  Report Type: Spontaneous
  Country: IT (occurrence: None)
  Receive Date: 20141209
  Receipt Date: 20141209
  Transmission Date: 20150529
  Serious: Yes (Hospitalization)
  Sender: FDA-Public Use
  Company Number: FK201405787

PATIENT
  Age: 82 Year
  Sex: Female

DRUGS (11)
  1. CITALOPRAM (CITALOPRAM) [Concomitant]
     Active Substance: CITALOPRAM HYDROBROMIDE
  2. LEVOFLOXACIN. [Suspect]
     Active Substance: LEVOFLOXACIN
     Indication: URINARY TRACT INFECTION
     Dosage: ORAL
     Route: 048
     Dates: start: 20141106, end: 20141111
  3. ADENURIC (FEBUXOSTAT) [Concomitant]
     Active Substance: FEBUXOSTAT
  4. LIBRADIN (CEFRADINE) [Concomitant]
  5. LEVOFLOXACIN KABI (NOT SPECIFIED) (LEVOFLOXACIN) (LEVOFLOXACIN) [Suspect]
     Active Substance: LEVOFLOXACIN
     Indication: PRODUCT USED FOR UNKNOWN INDICATION
     Dates: start: 20141105, end: 20141105
  6. LOSARTAN (LOSARTAN) [Concomitant]
     Active Substance: LOSARTAN
  7. OLANZAPINE (OLANZAPINE) [Concomitant]
     Active Substance: OLANZAPINE
  8. PANTOPRAZOLE (PANTOPRAZOLE) [Concomitant]
     Active Substance: PANTOPRAZOLE SODIUM
  9. SIMVASTATIN (SIMVASTATIN) [Concomitant]
     Active Substance: SIMVASTATIN
  10. ALDACTONE [Concomitant]
     Active Substance: SPIRONOLACTONE
  11. LEXOTAN (BROMAZEPAM) [Concomitant]

REACTIONS (1)
  - Epilepsy [None]

NARRATIVE: CASE EVENT DATE: 20141112
